FAERS Safety Report 4363280-7 (Version None)
Quarter: 2004Q2

REPORT INFORMATION
  Report Type: 
  Country: None (occurrence: None)
  Receive Date: 20040524
  Receipt Date: 20040512
  Transmission Date: 20050107
  Serious: Yes (Life-Threatening, Other)
  Sender: FDA-Public Use
  Company Number: JP-BRISTOL-MYERS SQUIBB COMPANY-12589867

PATIENT
  Age: 71 Year
  Sex: Female

DRUGS (4)
  1. IFOMIDE [Suspect]
     Indication: SARCOMA
     Dosage: C1: 29-DEC TO 02-JAN-04 C2: 19-JAN TO 23-JAN-04 C3: 09-FEB TO 13-FEB-04
     Route: 041
     Dates: start: 20031229, end: 20040213
  2. GRAN [Suspect]
     Indication: WHITE BLOOD CELL COUNT DECREASED
     Dosage: 75 UG 07 TO 16-JAN-04; 29-JAN TO 03-FEB-04; 18 TO 20-FEB-04; 23 TO 24-FEB-04; 150 UG 21 TO 22-FEB-04
     Route: 058
     Dates: start: 20040107, end: 20040224
  3. ADRIACIN [Suspect]
     Dosage: C1: 29-DEC TO 30-DEC-2003 C2: 19-JAN TO 20-JAN-2004 C3: 09-FEB TO 10-FEB-2004
     Route: 041
     Dates: start: 20031229, end: 20040210
  4. CEFAZOLIN [Concomitant]

REACTIONS (6)
  - ALOPECIA [None]
  - ANAEMIA [None]
  - ANOREXIA [None]
  - INTERSTITIAL LUNG DISEASE [None]
  - NAUSEA [None]
  - WHITE BLOOD CELL COUNT DECREASED [None]
